FAERS Safety Report 6540467-6 (Version None)
Quarter: 2010Q1

REPORT INFORMATION
  Report Type: 
  Country: None (occurrence: None)
  Receive Date: 20100113
  Receipt Date: 20100105
  Transmission Date: 20100710
  Serious: Yes (Life-Threatening)
  Sender: FDA-Public Use
  Company Number: 467054

PATIENT
  Age: 86 Year
  Sex: Male
  Weight: 59 kg

DRUGS (8)
  1. ACYCLOVIR SODIUM INJECTION (ACICLOVIR) [Suspect]
     Indication: DRUG USE FOR UNKNOWN INDICATION
     Dosage: 1000 MG DOSE EVERY 12 HOURS, INTRAVENOUS
     Route: 042
  2. ACETAMINOPHEN [Concomitant]
  3. AVODART [Concomitant]
  4. CEFTRIAXONE [Concomitant]
  5. DIMENHYDRINATE [Concomitant]
  6. (DOCUSATE) [Concomitant]
  7. HEPARIN SODIUM [Concomitant]
  8. ALBUTEROL [Concomitant]

REACTIONS (9)
  - BLOOD CREATININE INCREASED [None]
  - DEPRESSED LEVEL OF CONSCIOUSNESS [None]
  - DYSKINESIA [None]
  - LOSS OF CONSCIOUSNESS [None]
  - MUSCLE SPASTICITY [None]
  - MYOCLONUS [None]
  - NUCHAL RIGIDITY [None]
  - OPISTHOTONUS [None]
  - OROPHARYNGEAL SPASM [None]
